FAERS Safety Report 8015943-X (Version None)
Quarter: 2011Q4

REPORT INFORMATION
  Report Type: 
  Country: None (occurrence: None)
  Receive Date: 20111223
  Receipt Date: 20111219
  Transmission Date: 20120403
  Serious: Yes (Other)
  Sender: FDA-Public Use
  Company Number: GER/UKI/11/0022388

PATIENT
  Age: 50 Year
  Sex: Male

DRUGS (4)
  1. SERETIDE (SERETIDE) [Concomitant]
  2. DIHYDROCODEINE BITARTRATE INJ [Concomitant]
  3. OLANZAPINE [Suspect]
     Indication: PRODUCT USED FOR UNKNOWN INDICATION
     Dosage: 20 MG, ORAL
     Route: 048
  4. CARBAMAZEPINE [Concomitant]

REACTIONS (2)
  - BLOOD PROLACTIN INCREASED [None]
  - PITUITARY TUMOUR BENIGN [None]
